FAERS Safety Report 6093829-8 (Version None)
Quarter: 2009Q1

REPORT INFORMATION
  Report Type: 
  Country: None (occurrence: None)
  Receive Date: 20090223
  Receipt Date: 20090223
  Transmission Date: 20090719
  Serious: Yes (Other)
  Sender: FDA-Public Use
  Company Number: None

PATIENT
  Age: 47 Year
  Sex: Female
  Weight: 95.2554 kg

DRUGS (4)
  1. VENLAFAXINE HCL [Suspect]
     Indication: ANXIETY
     Dosage: 2 DOSES AM, 1 DOSE PM -SEE PREVIOUS- PO (DURATION:  SINCE IT CAME ON MARKET)
     Route: 048
  2. VENLAFAXINE HCL [Suspect]
     Indication: DEPRESSION
     Dosage: 2 DOSES AM, 1 DOSE PM -SEE PREVIOUS- PO (DURATION:  SINCE IT CAME ON MARKET)
     Route: 048
  3. EFFEXOR XR [Suspect]
     Indication: ANXIETY
     Dosage: 1 ONCE DAILY PO (DURATION: AT LEAST 5 YEARS)
     Route: 048
  4. EFFEXOR XR [Suspect]
     Indication: DEPRESSION
     Dosage: 1 ONCE DAILY PO (DURATION: AT LEAST 5 YEARS)
     Route: 048

REACTIONS (6)
  - ACTIVITIES OF DAILY LIVING IMPAIRED [None]
  - ANXIETY [None]
  - DRUG DEPENDENCE [None]
  - MALAISE [None]
  - PARAESTHESIA [None]
  - WITHDRAWAL SYNDROME [None]
